FAERS Safety Report 8121166-6 (Version None)
Quarter: 2012Q1

REPORT INFORMATION
  Report Type: 
  Country: None (occurrence: None)
  Receive Date: 20120208
  Receipt Date: 20120206
  Transmission Date: 20120608
  Serious: Yes (Life-Threatening)
  Sender: FDA-Public Use
  Company Number: DE-B.I. PHARMACEUTICALS,INC./RIDGEFIELD-2012-DE-00379DE

PATIENT
  Sex: Male
  Weight: 90 kg

DRUGS (12)
  1. PRADAXA [Suspect]
     Indication: CEREBRAL INFARCTION
  2. BISOPROLOL [Suspect]
     Indication: CORONARY ARTERY DISEASE
     Dosage: 50 MG
     Route: 048
     Dates: start: 20020101
  3. BISOPROLOL [Suspect]
     Indication: HYPERTENSION
  4. ASPIRIN [Suspect]
     Indication: CORONARY ARTERY DISEASE
     Dosage: 100 MG
     Route: 048
     Dates: start: 20020101, end: 20120122
  5. RAMIPRIL [Suspect]
     Indication: HYPERTENSION
     Dosage: 10 MG
     Route: 048
     Dates: start: 20020101
  6. PRADAXA [Suspect]
     Indication: ATRIAL FIBRILLATION
     Dosage: 220 MG
     Route: 048
     Dates: start: 20111019, end: 20120122
  7. ASPIRIN [Suspect]
     Indication: MYOCARDIAL INFARCTION
  8. BAYOTENSIN [Suspect]
     Indication: CORONARY ARTERY DISEASE
     Dosage: 20 MG
     Route: 048
     Dates: end: 20120122
  9. SIMVASTATIN [Suspect]
     Indication: HYPERLIPIDAEMIA
     Dosage: 40 MG
     Route: 048
     Dates: end: 20120122
  10. BAYOTENSIN [Suspect]
     Indication: HYPERTENSION
  11. TORSEMIDE [Suspect]
     Indication: HYPERTENSION
     Dosage: 5 MG
     Route: 048
     Dates: end: 20120122
  12. ASPIRIN [Suspect]
     Indication: CORONARY ARTERY BYPASS

REACTIONS (3)
  - SHOCK HAEMORRHAGIC [None]
  - DISSEMINATED INTRAVASCULAR COAGULATION [None]
  - HAEMATOMA [None]
